FAERS Safety Report 7721428-8 (Version None)
Quarter: 2011Q3

REPORT INFORMATION
  Report Type: 
  Country: None (occurrence: None)
  Receive Date: 20110831
  Receipt Date: 20110818
  Transmission Date: 20111222
  Serious: Yes (Death)
  Sender: FDA-Public Use
  Company Number: DE-ROCHE-793237

PATIENT
  Sex: Female
  Weight: 54 kg

DRUGS (5)
  1. AVASTIN [Suspect]
     Dosage: 7 INJECTIONS GIVEN
     Route: 065
     Dates: start: 20101201, end: 20110601
  2. CARMEN [Concomitant]
     Indication: HYPERTENSION
  3. BISOPROLOL FUMARATE [Concomitant]
     Indication: HYPERTENSION
  4. HERCEPTIN [Suspect]
     Route: 065
  5. TAXOL [Concomitant]
     Dates: start: 20101201, end: 20110601

REACTIONS (1)
  - METASTASES TO MENINGES [None]
